FAERS Safety Report 25104453 (Version 2)
Quarter: 2025Q2

REPORT INFORMATION
  Report Type: Spontaneous
  Country: US (occurrence: US)
  Receive Date: 20250321
  Receipt Date: 20250404
  Transmission Date: 20250717
  Serious: Yes (Other)
  Sender: AUROBINDO
  Company Number: US-MLMSERVICE-20250227-PI431931-00320-1

PATIENT
  Age: 4 Decade
  Sex: Male

DRUGS (3)
  1. TOPIRAMATE [Suspect]
     Active Substance: TOPIRAMATE
     Indication: Weight decreased
     Dosage: 23 MILLIGRAM, ONCE A DAY
     Route: 065
  2. PHENTERMINE HYDROCHLORIDE [Suspect]
     Active Substance: PHENTERMINE HYDROCHLORIDE
     Indication: Weight decreased
     Dosage: 3.75 MILLIGRAM, ONCE A DAY
     Route: 065
  3. MELATONIN [Suspect]
     Active Substance: MELATONIN
     Indication: Sleep disorder
     Route: 048

REACTIONS (2)
  - Myopia [Recovered/Resolved]
  - Choroidal effusion [Recovered/Resolved]
